FAERS Safety Report 19267058 (Version 4)
Quarter: 2022Q1

REPORT INFORMATION
  Report Type: Spontaneous
  Country: PT (occurrence: PT)
  Receive Date: 20210518
  Receipt Date: 20220324
  Transmission Date: 20220423
  Serious: Yes (Hospitalization, Other)
  Sender: FDA-Public Use
  Company Number: PT-ARISTO PHARMA-RASA202102221

PATIENT
  Age: 48 Year
  Sex: Male

DRUGS (7)
  1. RASAGILINE [Interacting]
     Active Substance: RASAGILINE
     Indication: Parkinson^s disease
     Dosage: 1 MILLIGRAM, ONCE A DAY (1 MG/DIA)
     Route: 065
  2. RASAGILINE [Interacting]
     Active Substance: RASAGILINE
     Dosage: 2 MILLIGRAM, ONCE A DAY
     Route: 065
  3. SERTRALINE [Interacting]
     Active Substance: SERTRALINE HYDROCHLORIDE
     Indication: Depression
     Dosage: 100 MILLIGRAM, ONCE A DAY, QD (100 MG/DIA)
     Route: 065
  4. LEVODOPA [Interacting]
     Active Substance: LEVODOPA
     Indication: Parkinson^s disease
     Dosage: 150 MILLIGRAM, ONCE A DAY (150 MILLIGRAM, QD (150 MG/DIA))
     Route: 065
  5. MIRTAZAPINE [Interacting]
     Active Substance: MIRTAZAPINE
     Indication: Major depression
     Dosage: 15 MILLIGRAM
     Route: 065
  6. PRAMIPEXOLE [Interacting]
     Active Substance: PRAMIPEXOLE
     Indication: Parkinson^s disease
     Dosage: 1.02 MILLIGRAM
     Route: 065
  7. VENLAFAXINE [Interacting]
     Active Substance: VENLAFAXINE HYDROCHLORIDE
     Indication: Major depression
     Dosage: 75 MILLIGRAM
     Route: 065

REACTIONS (6)
  - Serotonin syndrome [Recovered/Resolved]
  - Dyskinesia [Recovered/Resolved]
  - Potentiating drug interaction [Recovered/Resolved]
  - Accidental overdose [Recovered/Resolved]
  - Medication error [Recovered/Resolved]
  - Duplicate therapy error [Unknown]
